FAERS Safety Report 10919291 (Version 1)
Quarter: 2015Q1

REPORT INFORMATION
  Report Type: Spontaneous
  Country: PL (occurrence: PL)
  Receive Date: 20150316
  Receipt Date: 20150316
  Transmission Date: 20150721
  Serious: Yes (Other)
  Sender: FDA-Public Use
  Company Number: ALCN2015PL001305

PATIENT
  Age: 51 Year
  Sex: Female

DRUGS (1)
  1. DUOTRAV POLYQUAD [Suspect]
     Active Substance: TIMOLOL MALEATE\TRAVOPROST
     Indication: OPEN ANGLE GLAUCOMA
     Dosage: 1 GTT, QD, IN THE MORNING
     Route: 047
     Dates: start: 20150121, end: 20150204

REACTIONS (4)
  - Conjunctivitis [Recovered/Resolved]
  - Eyelid oedema [Recovered/Resolved]
  - Blepharitis [Recovered/Resolved]
  - Eye allergy [Recovered/Resolved]

NARRATIVE: CASE EVENT DATE: 20150121
